FAERS Safety Report 9220752 (Version 2)
Quarter: 2013Q4

REPORT INFORMATION
  Report Type: Report from Study
  Country: JP (occurrence: JP)
  Receive Date: 20130409
  Receipt Date: 20131031
  Transmission Date: 20140711
  Serious: Yes (Death, Life-Threatening, Other)
  Sender: FDA-Public Use
  Company Number: JP-009507513-2008SP013161

PATIENT
  Age: 12 Year
  Sex: Female
  Weight: 36 kg

DRUGS (16)
  1. TEMOZOLOMIDE [Suspect]
     Indication: ANAPLASTIC ASTROCYTOMA
     Dosage: 75 MG/M2, QD
     Route: 048
     Dates: start: 20070725, end: 20070904
  2. TEMOZOLOMIDE [Suspect]
     Dosage: 150 MG/M2, QD
     Route: 048
     Dates: start: 20071013, end: 20071017
  3. TEMOZOLOMIDE [Suspect]
     Dosage: 200 MG/M2, QD
     Route: 048
     Dates: start: 20071113, end: 20071117
  4. TEMOZOLOMIDE [Suspect]
     Dosage: 200 MG/M2, QD
     Route: 048
     Dates: start: 20071215, end: 20071219
  5. TEMOZOLOMIDE [Suspect]
     Dosage: 200 MG/M2, QD
     Route: 048
     Dates: start: 20080119, end: 20080123
  6. TEMOZOLOMIDE [Suspect]
     Dosage: 200 MG/M2, QD
     Route: 048
     Dates: start: 20080223, end: 20080227
  7. TEMOZOLOMIDE [Suspect]
     Dosage: 200 MG/M2, QD
     Route: 048
     Dates: start: 20080402, end: 20080406
  8. TEMOZOLOMIDE [Suspect]
     Dosage: 200 MG/M2, QD
     Route: 048
     Dates: start: 20080503, end: 20080507
  9. TEMOZOLOMIDE [Suspect]
     Dosage: 200 MG/M2, QD
     Route: 048
     Dates: start: 20080614, end: 20080618
  10. TEMOZOLOMIDE [Suspect]
     Dosage: 200 MG/M2, QD
     Route: 048
     Dates: start: 20080719, end: 20080723
  11. DEPAKENE [Suspect]
     Indication: CONVULSION PROPHYLAXIS
     Dosage: UNK
     Route: 048
     Dates: end: 20080907
  12. BAKTAR [Concomitant]
     Indication: ANTIFUNGAL PROPHYLAXIS
     Dosage: GIVEN ON SATURDAYS AND SUNDAYS ONLY
     Route: 048
     Dates: start: 20070825, end: 20070909
  13. NAVOBAN [Concomitant]
     Indication: PROPHYLAXIS
     Dosage: WHEN TEMODARL IS PRESCRIBED
     Route: 048
     Dates: start: 20070725
  14. MAGMITT [Concomitant]
     Indication: CONSTIPATION PROPHYLAXIS
     Route: 048
     Dates: start: 20070725
  15. CALONAL [Concomitant]
     Indication: PROPHYLAXIS
     Dosage: AT THE HEADACHE
     Route: 048
  16. FUNGIZONE [Concomitant]
     Route: 002
     Dates: start: 20070815, end: 200709

REACTIONS (11)
  - Acute lymphocytic leukaemia [Fatal]
  - Pneumonia [Not Recovered/Not Resolved]
  - White blood cell count decreased [Not Recovered/Not Resolved]
  - Lymphocyte count decreased [Recovering/Resolving]
  - Neutrophil count decreased [Recovering/Resolving]
  - Platelet count decreased [Recovering/Resolving]
  - Convulsion [Recovered/Resolved]
  - Constipation [Recovered/Resolved]
  - Fungal infection [Recovered/Resolved]
  - Urticaria [Recovered/Resolved]
  - Oral herpes [Recovered/Resolved]
